FAERS Safety Report 5208583-9 (Version None)
Quarter: 2006Q4

REPORT INFORMATION
  Report Type: 
  Country: None (occurrence: None)
  Receive Date: 20061027
  Receipt Date: 20060515
  Transmission Date: 20070319
  Serious: Yes (Hospitalization, Other)
  Sender: FDA-Public Use
  Company Number: HQWYE764503AUG04

PATIENT
  Age: 65 Year
  Sex: Female
  Weight: 65.83 kg

DRUGS (4)
  1. PREMARIN [Suspect]
     Indication: DRUG USE FOR UNKNOWN INDICATION
  2. MEDROXYPROGESTERONE [Suspect]
     Indication: DRUG USE FOR UNKNOWN INDICATION
  3. PREMPRO [Suspect]
     Indication: DRUG USE FOR UNKNOWN INDICATION
  4. PROVERA [Suspect]
     Indication: DRUG USE FOR UNKNOWN INDICATION

REACTIONS (1)
  - BREAST CANCER [None]
